FAERS Safety Report 26068395 (Version 1)
Quarter: 2025Q4

REPORT INFORMATION
  Report Type: Spontaneous
  Country: US (occurrence: US)
  Receive Date: 20251120
  Receipt Date: 20251120
  Transmission Date: 20260117
  Serious: Yes (Hospitalization)
  Sender: LABORATOIRES SERB
  Company Number: US-SERB S.A.S.-2188953

PATIENT

DRUGS (1)
  1. CROFAB [Suspect]
     Active Substance: AGKISTRODON PISCIVORUS IMMUNE FAB ANTIVENIN (OVINE)\CROTALUS ADAMANTEUS IMMUNE FAB ANTIVENIN (OVINE)
     Indication: Snake bite
     Dates: start: 20240928, end: 20240929

REACTIONS (3)
  - Swelling [Not Recovered/Not Resolved]
  - Off label use [Not Recovered/Not Resolved]
  - Inappropriate schedule of product administration [Not Recovered/Not Resolved]
